FAERS Safety Report 6035452-7 (Version None)
Quarter: 2009Q1

REPORT INFORMATION
  Report Type: 
  Country: None (occurrence: None)
  Receive Date: 20090113
  Receipt Date: 20090109
  Transmission Date: 20090719
  Serious: Yes (Hospitalization)
  Sender: FDA-Public Use
  Company Number: PL-BRISTOL-MYERS SQUIBB COMPANY-14465934

PATIENT
  Age: 23 Year
  Sex: Female

DRUGS (7)
  1. ABILIFY [Suspect]
     Indication: PSYCHOTIC DISORDER
     Dosage: 1DF = DOSE FROM 7.5MG TO 30MG ONCE DAILY IN THE MORNING
     Route: 048
     Dates: start: 20081208, end: 20090105
  2. PERAZINE [Concomitant]
     Dates: start: 20081201, end: 20081215
  3. RISPOLEPT [Concomitant]
     Dates: start: 20081201, end: 20081208
  4. ZALASTA [Concomitant]
     Dates: start: 20080105
  5. AKINETON [Concomitant]
  6. CLORANXEN [Concomitant]
  7. BENZODIAZEPINE [Concomitant]
     Dosage: BENZODIAZEPINE DERIVATIVES

REACTIONS (3)
  - ASTHENIA [None]
  - JOINT ANKYLOSIS [None]
  - VISUAL IMPAIRMENT [None]
